FAERS Safety Report 26212321 (Version 1)
Quarter: 2025Q4

REPORT INFORMATION
  Report Type: Spontaneous
  Country: EG (occurrence: EG)
  Receive Date: 20251230
  Receipt Date: 20251230
  Transmission Date: 20260118
  Serious: Yes (Life-Threatening, Hospitalization, Disabling, Other)
  Sender: HIKMA
  Company Number: EG-HIKMA PHARMACEUTICALS USA INC.-EG-H14001-25-13753

PATIENT
  Age: 26 Year
  Sex: Female
  Weight: 62 kg

DRUGS (2)
  1. CISPLATIN [Suspect]
     Active Substance: CISPLATIN
     Indication: Triple negative breast cancer
     Dosage: 48 MILLIGRAM, 3W (DAY 1, DAY 8 EVERY 21 DAYS) DOSE 2
     Dates: start: 20250927, end: 20250927
  2. GEMCITABINE [Suspect]
     Active Substance: GEMCITABINE
     Indication: Triple negative breast cancer
     Dosage: 1200 MILLIGRAM, 3W (DAY 1, DAY 8, EVERY 21 DAYS) (1 G / 26.3 ML STRENGTH) DOSE 2
     Dates: start: 20250927, end: 20250927

REACTIONS (12)
  - Brain oedema [Recovering/Resolving]
  - Cerebral artery stenosis [Recovering/Resolving]
  - Dyspnoea at rest [Recovering/Resolving]
  - Myocardial ischaemia [Recovering/Resolving]
  - Muscular weakness [Recovering/Resolving]
  - Paralysis [Recovering/Resolving]
  - Dysarthria [Recovering/Resolving]
  - Electrocardiogram PR shortened [Recovering/Resolving]
  - Mental disorder [Recovering/Resolving]
  - Hypertension [Recovering/Resolving]
  - Vision blurred [Recovering/Resolving]
  - Sinus tachycardia [Recovering/Resolving]

NARRATIVE: CASE EVENT DATE: 20250927
